FAERS Safety Report 24346198 (Version 1)
Quarter: 2024Q3

REPORT INFORMATION
  Report Type: Spontaneous
  Country: US (occurrence: US)
  Receive Date: 20240921
  Receipt Date: 20240921
  Transmission Date: 20241017
  Serious: No
  Sender: AUROBINDO
  Company Number: US-AUROBINDO-AUR-APL-2024-031498

PATIENT
  Age: 66 Year
  Sex: Female
  Weight: 59.874 kg

DRUGS (4)
  1. ALENDRONATE SODIUM [Suspect]
     Active Substance: ALENDRONATE SODIUM
     Indication: Osteopenia
     Dosage: 70 MILLIGRAM ONCE A WEEK
     Route: 065
     Dates: start: 20240603
  2. ALENDRONATE SODIUM [Suspect]
     Active Substance: ALENDRONATE SODIUM
     Dosage: 70 MILLIGRAM ONCE A WEEK
     Route: 065
     Dates: start: 20240610
  3. ALENDRONATE SODIUM [Suspect]
     Active Substance: ALENDRONATE SODIUM
     Dosage: 70 MILLIGRAM, ONCE A WEEK
     Route: 048
     Dates: start: 20240617
  4. WEGOVY [Concomitant]
     Active Substance: SEMAGLUTIDE
     Indication: Product used for unknown indication
     Dosage: UNK
     Route: 065

REACTIONS (3)
  - Diplopia [Not Recovered/Not Resolved]
  - Eye pain [Not Recovered/Not Resolved]
  - Vision blurred [Not Recovered/Not Resolved]

NARRATIVE: CASE EVENT DATE: 20240615
